FAERS Safety Report 25523674 (Version 1)
Quarter: 2025Q3

REPORT INFORMATION
  Report Type: Spontaneous
  Country: KR (occurrence: None)
  Receive Date: 20250707
  Receipt Date: 20250707
  Transmission Date: 20251021
  Serious: Yes (Other)
  Sender: ENCUBE ETHICALS
  Company Number: KR-Encube-002019

PATIENT
  Age: 32 Year
  Sex: Female

DRUGS (1)
  1. METRONIDAZOLE [Suspect]
     Active Substance: METRONIDAZOLE
     Indication: Vaginal discharge

REACTIONS (3)
  - Toxic encephalopathy [Recovering/Resolving]
  - Polyneuropathy [Recovering/Resolving]
  - Off label use [Unknown]
